FAERS Safety Report 4844032-8 (Version None)
Quarter: 2005Q4

REPORT INFORMATION
  Report Type: 
  Country: None (occurrence: None)
  Receive Date: 20051202
  Receipt Date: 20050929
  Transmission Date: 20060501
  Serious: Yes (Hospitalization)
  Sender: FDA-Public Use
  Company Number: US-MERCK-0510USA00582

PATIENT
  Age: 63 Year
  Sex: Female
  Weight: 68 kg

DRUGS (1)
  1. VIOXX [Suspect]
     Route: 048
     Dates: start: 19991001, end: 20040901

REACTIONS (4)
  - BACK DISORDER [None]
  - ISCHAEMIC STROKE [None]
  - SLEEP DISORDER [None]
  - SURGERY [None]
